FAERS Safety Report 25892536 (Version 1)
Quarter: 2025Q4

REPORT INFORMATION
  Report Type: Spontaneous
  Country: EG (occurrence: EG)
  Receive Date: 20251007
  Receipt Date: 20251007
  Transmission Date: 20260118
  Serious: Yes (Other)
  Sender: RISING PHARMACEUTICALS
  Company Number: EG-RISINGPHARMA-EG-2025RISLIT00481

PATIENT
  Age: 27 Year
  Sex: Female
  Weight: 52 kg

DRUGS (2)
  1. PREDNISOLONE [Suspect]
     Active Substance: PREDNISOLONE
     Indication: Weight increased
     Route: 048
  2. PREDNISOLONE [Suspect]
     Active Substance: PREDNISOLONE
     Dosage: TAPERED TO 7.5 MG PER DAY
     Route: 065

REACTIONS (12)
  - Ulcerative keratitis [Recovering/Resolving]
  - Adrenal insufficiency [Recovering/Resolving]
  - Drug abuse [Unknown]
  - Ocular hyperaemia [Recovering/Resolving]
  - Ocular discomfort [Recovering/Resolving]
  - Eye pain [Recovering/Resolving]
  - Visual impairment [Recovering/Resolving]
  - Corneal perforation [Recovering/Resolving]
  - Bacterial infection [Recovering/Resolving]
  - Keratitis viral [Recovering/Resolving]
  - Intentional product misuse [Unknown]
  - Product use in unapproved indication [Unknown]
